FAERS Safety Report 10968820 (Version 2)
Quarter: 2015Q3

REPORT INFORMATION
  Report Type: Spontaneous
  Country: GB (occurrence: GB)
  Receive Date: 20150331
  Receipt Date: 20150925
  Transmission Date: 20151125
  Serious: Yes (Other)
  Sender: FDA-Public Use
  Company Number: GB-009507513-1503GBR013197

PATIENT
  Sex: Female

DRUGS (2)
  1. NEXPLANON [Suspect]
     Active Substance: ETONOGESTREL
     Dosage: UNK
     Route: 059
  2. NEXPLANON [Suspect]
     Active Substance: ETONOGESTREL
     Dosage: UNK
     Route: 059
     Dates: start: 201302

REACTIONS (4)
  - Ovarian cyst ruptured [Unknown]
  - Appendicectomy [Unknown]
  - Oligomenorrhoea [Unknown]
  - Amenorrhoea [Recovered/Resolved]

NARRATIVE: CASE EVENT DATE: 201302
